FAERS Safety Report 8355498-3 (Version None)
Quarter: 2012Q2

REPORT INFORMATION
  Report Type: 
  Country: None (occurrence: None)
  Receive Date: 20120512
  Receipt Date: 20120423
  Transmission Date: 20120825
  Serious: Yes (Death)
  Sender: FDA-Public Use
  Company Number: PHHY2010KR29194

PATIENT
  Sex: Female
  Weight: 70 kg

DRUGS (1)
  1. EXJADE [Suspect]
     Indication: IRON OVERLOAD
     Dosage: 15 MG/KG
     Route: 048
     Dates: start: 20090910, end: 20100114

REACTIONS (3)
  - DEATH [None]
  - ACUTE MYELOID LEUKAEMIA RECURRENT [None]
  - NEOPLASM MALIGNANT [None]
